FAERS Safety Report 15741089 (Version 1)
Quarter: 2018Q4

REPORT INFORMATION
  Report Type: Spontaneous
  Country: CN (occurrence: CN)
  Receive Date: 20181219
  Receipt Date: 20181219
  Transmission Date: 20190205
  Serious: Yes (Hospitalization)
  Sender: FDA-Public Use
  Company Number: CN-SAKK-2018SA342680AA

PATIENT
  Age: 52 Year
  Sex: Male
  Weight: 75 kg

DRUGS (3)
  1. GLIMEPIRIDE. [Suspect]
     Active Substance: GLIMEPIRIDE
     Indication: TYPE 2 DIABETES MELLITUS
     Dosage: 3 MG, QD
     Route: 048
  2. METFORMIN HYDROCHLORIDE. [Concomitant]
     Active Substance: METFORMIN HYDROCHLORIDE
     Indication: BLOOD GLUCOSE ABNORMAL
     Dosage: 500 MG, BID, SUSTAINED-RELEASE TABLETS
     Route: 048
  3. GLIMEPIRIDE. [Suspect]
     Active Substance: GLIMEPIRIDE
     Indication: BLOOD GLUCOSE ABNORMAL
     Dosage: 4 MG, QD
     Route: 048

REACTIONS (13)
  - Diabetic eye disease [Recovering/Resolving]
  - Liver disorder [Recovered/Resolved]
  - Condition aggravated [Recovered/Resolved]
  - Hepatic steatosis [Recovered/Resolved]
  - Xerophthalmia [Recovered/Resolved]
  - Nocturia [Recovered/Resolved]
  - Arteriosclerotic retinopathy [Recovered/Resolved]
  - Macular degeneration [Recovered/Resolved]
  - Essential hypertension [Recovered/Resolved]
  - Dyslipidaemia [Recovered/Resolved]
  - Diabetic nephropathy [Recovering/Resolving]
  - Ventricular hypertrophy [Recovered/Resolved]
  - Left ventricular dysfunction [Recovered/Resolved]
